FAERS Safety Report 25645534 (Version 1)
Quarter: 2025Q3

REPORT INFORMATION
  Report Type: Spontaneous
  Country: US (occurrence: US)
  Receive Date: 20250805
  Receipt Date: 20250805
  Transmission Date: 20251020
  Serious: No
  Sender: EISAI
  Company Number: US-Eisai-EC-2025-193686

PATIENT
  Age: 78 Year
  Sex: Female

DRUGS (1)
  1. LEQEMBI [Suspect]
     Active Substance: LECANEMAB-IRMB
     Indication: Product used for unknown indication
     Dates: start: 20250317, end: 20250529

REACTIONS (1)
  - Amyloid related imaging abnormalities [Unknown]

NARRATIVE: CASE EVENT DATE: 20250101
